FAERS Safety Report 8860622 (Version 1)
Quarter: 2012Q4

REPORT INFORMATION
  Report Type: 
  Country: DE (occurrence: DE)
  Receive Date: 20121025
  Receipt Date: 20121025
  Transmission Date: 20130627
  Serious: Yes (Other)
  Sender: FDA-Public Use
  Company Number: DE-PFIZER INC-2012262276

PATIENT
  Age: 51 Year
  Sex: Male

DRUGS (3)
  1. NELFINAVIR MESILATE [Suspect]
     Indication: ANTIRETROVIRAL THERAPY
     Dosage: UNK
  2. DIDANOSINE [Suspect]
     Indication: ANTIRETROVIRAL THERAPY
     Dosage: UNK
  3. STAVUDINE [Suspect]
     Indication: ANTIRETROVIRAL THERAPY
     Dosage: UNK

REACTIONS (1)
  - Immune reconstitution inflammatory syndrome [Recovered/Resolved]
